FAERS Safety Report 9286660 (Version 1)
Quarter: 2012Q4

REPORT INFORMATION
  Report Type: Spontaneous
  Country: US (occurrence: None)
  Receive Date: 20120926
  Receipt Date: 20120926
  Transmission Date: 20130627
  Serious: Yes (Other)
  Sender: FDA-Public Use
  Company Number: AUR-APL-2012-03929

PATIENT
  Sex: Female
  Weight: 86.18 kg

DRUGS (1)
  1. ZOLPIDEM (ZOLPIDEM) [Suspect]
     Indication: INSOMNIA
     Dosage: onte tablet at bed time (5 mg, 1 in 1 D)

REACTIONS (4)
  - Memory impairment [None]
  - Abnormal behaviour [None]
  - Victim of sexual abuse [None]
  - Product substitution issue [None]
